FAERS Safety Report 8927590 (Version 1)
Quarter: 2012Q4

REPORT INFORMATION
  Report Type: 
  Country: MX (occurrence: MX)
  Receive Date: 20121127
  Receipt Date: 20121127
  Transmission Date: 20130627
  Serious: Yes (Hospitalization, Other)
  Sender: FDA-Public Use
  Company Number: PHHY2012MX108038

PATIENT
  Age: 62 None
  Sex: Female

DRUGS (8)
  1. ACLASTA [Suspect]
     Indication: OSTEOPOROSIS
     Dosage: 5 mg, yearly
     Route: 042
     Dates: start: 2008
  2. ACLASTA [Suspect]
     Dosage: 5 mg, yearly
     Route: 042
  3. ACLASTA [Suspect]
     Dosage: 5 mg, yearly
     Route: 042
  4. ACLASTA [Suspect]
     Dosage: 5 mg, yearly
     Route: 042
  5. ACLASTA [Suspect]
     Dosage: 5 mg, yearly
     Route: 042
     Dates: start: 201207
  6. SINTREPICTE [Concomitant]
  7. ATORVASTATIN [Concomitant]
     Indication: BLOOD CHOLESTEROL INCREASED
     Dosage: 1 DF, UNK
     Dates: start: 201209
  8. VITAMIN E [Concomitant]
     Dosage: 1 DF, UNK
     Dates: start: 201210

REACTIONS (6)
  - Abdominal adhesions [Recovered/Resolved]
  - Abdominal pain [Recovered/Resolved]
  - Vomiting [Recovered/Resolved]
  - Bone density decreased [Unknown]
  - Diarrhoea [Recovered/Resolved]
  - Drug ineffective [Not Recovered/Not Resolved]
